FAERS Safety Report 12090394 (Version 1)
Quarter: 2016Q1

REPORT INFORMATION
  Report Type: Spontaneous
  Country: US (occurrence: US)
  Receive Date: 20160218
  Receipt Date: 20160218
  Transmission Date: 20160526
  Serious: No
  Sender: FDA-Public Use
  Company Number: US-ENDO PHARMACEUTICALS INC.-2015-002904

PATIENT
  Age: 56 Year
  Sex: Female
  Weight: 116.22 kg

DRUGS (3)
  1. HYDROCODONE [Concomitant]
     Active Substance: HYDROCODONE
     Indication: NECK PAIN
  2. METHOCARBAMOL TABLETS 750MG [Suspect]
     Active Substance: METHOCARBAMOL
     Indication: NECK PAIN
     Dosage: ^1/2 TABLET EVERY FOUR HOURS; MAYBE 1/2 TABLET 3 TO 4 TIMES A DAY^
     Route: 048
     Dates: start: 201504, end: 201507
  3. LYRICA [Concomitant]
     Active Substance: PREGABALIN
     Indication: INTERVERTEBRAL DISC PROTRUSION

REACTIONS (2)
  - Drug ineffective [Unknown]
  - Wrong technique in product usage process [Recovered/Resolved]

NARRATIVE: CASE EVENT DATE: 201504
